FAERS Safety Report 5151432-8 (Version None)
Quarter: 2006Q4

REPORT INFORMATION
  Report Type: 
  Country: None (occurrence: None)
  Receive Date: 20061115
  Receipt Date: 20061106
  Transmission Date: 20070319
  Serious: Yes (Hospitalization)
  Sender: FDA-Public Use
  Company Number: BR-BRISTOL-MYERS SQUIBB COMPANY-13573522

PATIENT
  Age: 57 Year
  Sex: Female

DRUGS (5)
  1. CETUXIMAB [Suspect]
     Indication: ANAL CANCER
     Route: 041
     Dates: start: 20060928, end: 20060928
  2. FLUOROURACIL [Suspect]
     Indication: ANAL CANCER
     Route: 041
     Dates: start: 20060928, end: 20060928
  3. RADIATION THERAPY [Suspect]
     Indication: ANAL CANCER
     Dates: start: 20060928, end: 20060928
  4. METOPROLOL TARTRATE [Concomitant]
     Indication: HYPERTENSION
     Route: 048
     Dates: start: 20060821
  5. LOPERAMIDE [Concomitant]
     Indication: DIARRHOEA
     Dates: start: 20060827, end: 20061006

REACTIONS (3)
  - DEHYDRATION [None]
  - DIARRHOEA [None]
  - HYPOKALAEMIA [None]
